FAERS Safety Report 8464522-9 (Version None)
Quarter: 2012Q2

REPORT INFORMATION
  Report Type: 
  Country: None (occurrence: None)
  Receive Date: 20120620
  Receipt Date: 20120620
  Transmission Date: 20120825
  Serious: Yes (Other)
  Sender: FDA-Public Use
  Company Number: None

PATIENT
  Sex: Female
  Weight: 53.5244 kg

DRUGS (3)
  1. LAMOTRIGINE [Suspect]
     Indication: BIPOLAR I DISORDER
     Dosage: 100 MG ONCE @ HS
     Dates: start: 20110830, end: 20111213
  2. LEXAPRO [Concomitant]
  3. INVEGA [Concomitant]

REACTIONS (1)
  - NO THERAPEUTIC RESPONSE [None]
